FAERS Safety Report 16446921 (Version 1)
Quarter: 2019Q2

REPORT INFORMATION
  Report Type: Spontaneous
  Country: DE (occurrence: DE)
  Receive Date: 20190618
  Receipt Date: 20190618
  Transmission Date: 20190711
  Serious: Yes (Death, Other)
  Sender: FDA-Public Use
  Company Number: DE-MYLANLABS-2019M1057093

PATIENT
  Age: 52 Year

DRUGS (4)
  1. BUSULFAN. [Concomitant]
     Active Substance: BUSULFAN
     Dosage: 16 MILLIGRAM/KILOGRAM
  2. FLUDARABINE [Concomitant]
     Active Substance: FLUDARABINE PHOSPHATE
     Dosage: 112 MILLIGRAM/SQ. METER
  3. IMATINIB. [Suspect]
     Active Substance: IMATINIB MESYLATE
     Indication: BLAST CRISIS IN MYELOGENOUS LEUKAEMIA
     Dosage: 400 MILLIGRAM, QD
     Route: 065
     Dates: end: 200202
  4. IMATINIB. [Suspect]
     Active Substance: IMATINIB MESYLATE
     Dosage: 800 MILLIGRAM, QD
     Route: 065
     Dates: start: 200202

REACTIONS (9)
  - Mucosal inflammation [Recovering/Resolving]
  - Oedema [Unknown]
  - Toxic epidermal necrolysis [Recovering/Resolving]
  - Rash erythematous [Recovering/Resolving]
  - Graft versus host disease [Fatal]
  - Blister [Unknown]
  - Transplant rejection [Unknown]
  - Purpura [Unknown]
  - Skin exfoliation [Recovering/Resolving]
